FAERS Safety Report 6402775-9 (Version None)
Quarter: 2009Q4

REPORT INFORMATION
  Report Type: 
  Country: None (occurrence: None)
  Receive Date: 20091016
  Receipt Date: 20070308
  Transmission Date: 20100525
  Serious: Yes (Disabling)
  Sender: FDA-Public Use
  Company Number: US-ASTRAZENECA-2006UW07961

PATIENT
  Sex: Female
  Weight: 140.2 kg

DRUGS (1)
  1. SEROQUEL [Suspect]
     Dosage: 25-300 MG
     Route: 048
     Dates: start: 20020907

REACTIONS (2)
  - ILL-DEFINED DISORDER [None]
  - MULTIPLE INJURIES [None]
